FAERS Safety Report 4370815-7 (Version None)
Quarter: 2004Q2

REPORT INFORMATION
  Report Type: 
  Country: None (occurrence: None)
  Receive Date: 20040601
  Receipt Date: 20040521
  Transmission Date: 20050107
  Serious: Yes (Life-Threatening)
  Sender: FDA-Public Use
  Company Number: J081-002-001650

PATIENT
  Age: 72 Year
  Sex: Male

DRUGS (4)
  1. ARICEPT (DONEPEZIL HYDROCHLORIDE) [Suspect]
     Indication: DEMENTIA ALZHEIMER'S TYPE
     Dosage: SEE IMAGE
     Route: 048
     Dates: start: 20010523, end: 20010603
  2. ARICEPT (DONEPEZIL HYDROCHLORIDE) [Suspect]
     Indication: DEMENTIA ALZHEIMER'S TYPE
     Dosage: SEE IMAGE
     Route: 048
     Dates: start: 20010604, end: 20040509
  3. HIRNAMIN (LEVOMEPROMAZINE) [Suspect]
     Indication: INSOMNIA
     Dosage: 5 MG, ORAL
     Route: 048
     Dates: start: 20031020, end: 20040509
  4. DIAZEPAM [Concomitant]

REACTIONS (1)
  - RHABDOMYOLYSIS [None]
